FAERS Safety Report 15586689 (Version 1)
Quarter: 2018Q4

REPORT INFORMATION
  Report Type: Spontaneous
  Country: US (occurrence: US)
  Receive Date: 20181101
  Receipt Date: 20181101
  Transmission Date: 20190205
  Serious: No
  Sender: FDA-Public Use
  Company Number: None

PATIENT
  Age: 70 Year
  Sex: Female

DRUGS (8)
  1. RANITIDINE. [Concomitant]
     Active Substance: RANITIDINE
  2. MVI [Concomitant]
     Active Substance: VITAMINS
  3. GLEEVEC [Suspect]
     Active Substance: IMATINIB MESYLATE
     Dosage: ?          QUANTITY:2 DF DOSAGE FORM;?
     Route: 048
     Dates: start: 20160726
  4. LISINOPRIL. [Concomitant]
     Active Substance: LISINOPRIL
  5. LYRICA [Concomitant]
     Active Substance: PREGABALIN
  6. GABAPENTIN. [Concomitant]
     Active Substance: GABAPENTIN
  7. MECLLZLNE [Concomitant]
  8. LYRICA [Concomitant]
     Active Substance: PREGABALIN

REACTIONS (2)
  - Vertigo [None]
  - Tinnitus [None]

NARRATIVE: CASE EVENT DATE: 20181009
